FAERS Safety Report 9206731 (Version 2)
Quarter: 2013Q4

REPORT INFORMATION
  Report Type: Spontaneous
  Country: US (occurrence: US)
  Receive Date: 20130403
  Receipt Date: 20131226
  Transmission Date: 20140711
  Serious: Yes (Other)
  Sender: FDA-Public Use
  Company Number: US-BAYER-2013-040687

PATIENT
  Age: 22 Year
  Sex: Female

DRUGS (5)
  1. YAZ [Suspect]
     Dosage: UNK
     Dates: start: 2002
  2. YASMIN [Suspect]
     Dosage: UNK
     Dates: start: 2002
  3. CETIRIZINE [Concomitant]
  4. CIPROFLOXACIN [Concomitant]
  5. ETHINYLESTRADIOL W/NORGESTIMATE [Concomitant]

REACTIONS (6)
  - Gallbladder injury [None]
  - Cholecystitis chronic [None]
  - Injury [None]
  - Fear of disease [None]
  - Pain [None]
  - Pain [None]
